FAERS Safety Report 23750679 (Version 1)
Quarter: 2024Q2

REPORT INFORMATION
  Report Type: Spontaneous
  Country: RS (occurrence: RS)
  Receive Date: 20240417
  Receipt Date: 20240417
  Transmission Date: 20240715
  Serious: Yes (Other)
  Sender: FDA-Public Use
  Company Number: RS-TEVA-VS-3183070

PATIENT
  Age: 57 Year
  Sex: Female
  Weight: 76 kg

DRUGS (2)
  1. OMEPRAZOLE [Suspect]
     Active Substance: OMEPRAZOLE
     Indication: Dyspepsia
     Route: 048
     Dates: start: 20231010
  2. DIAZEPAM [Suspect]
     Active Substance: DIAZEPAM
     Indication: Anxiety
     Route: 048
     Dates: start: 20231012

REACTIONS (1)
  - Cognitive disorder [Recovered/Resolved]

NARRATIVE: CASE EVENT DATE: 20231010
